FAERS Safety Report 5323059-6 (Version None)
Quarter: 2007Q2

REPORT INFORMATION
  Report Type: 
  Country: None (occurrence: None)
  Receive Date: 20070507
  Receipt Date: 20070427
  Transmission Date: 20071010
  Serious: Yes (Hospitalization, Disabling, Other)
  Sender: FDA-Public Use
  Company Number: 163-21880-07040570

PATIENT
  Age: 51 Year
  Sex: Female

DRUGS (9)
  1. REVLIMID [Suspect]
     Indication: MULTIPLE MYELOMA
     Dosage: EVERY 14 OUT OF 21 DAYS, ORAL
     Route: 048
     Dates: start: 20060101, end: 20070101
  2. DEXAMETHSONE (DEXAMETHASONE) [Concomitant]
  3. COUMADIN [Concomitant]
  4. CELEBREX [Concomitant]
  5. IBUPROFEN [Concomitant]
  6. FAMVIR [Concomitant]
  7. SYNTHROID [Concomitant]
  8. LISINOPRIL [Concomitant]
  9. COREG [Concomitant]

REACTIONS (8)
  - ARTHRITIS BACTERIAL [None]
  - CARDIOMYOPATHY [None]
  - CONDITION AGGRAVATED [None]
  - DEHYDRATION [None]
  - EJECTION FRACTION DECREASED [None]
  - FALL [None]
  - PNEUMONIA [None]
  - SEPSIS [None]
